FAERS Safety Report 7498714-2 (Version None)
Quarter: 2011Q2

REPORT INFORMATION
  Report Type: 
  Country: None (occurrence: None)
  Receive Date: 20110524
  Receipt Date: 20110511
  Transmission Date: 20111010
  Serious: Yes (Other)
  Sender: FDA-Public Use
  Company Number: US-JNJFOC-20110505456

PATIENT
  Age: 4 Decade
  Sex: Female

DRUGS (2)
  1. REMICADE [Suspect]
     Indication: COLITIS ULCERATIVE
     Dosage: PATIENT WHO HAS BEEN ON REMICADE FOR 2-3 YEARS
     Route: 042
  2. REMICADE [Suspect]
     Dosage: PATIENT WHO HAS BEEN ON REMICADE FOR 2-3 YEARS
     Route: 042

REACTIONS (1)
  - MYASTHENIA GRAVIS [None]
